FAERS Safety Report 4325842-2 (Version None)
Quarter: 2004Q1

REPORT INFORMATION
  Report Type: 
  Country: None (occurrence: None)
  Receive Date: 20040329
  Receipt Date: 20040325
  Transmission Date: 20041129
  Serious: Yes (Hospitalization)
  Sender: FDA-Public Use
  Company Number: TH-ROCHE-362654

PATIENT
  Age: 40 Year
  Sex: Female
  Weight: 46 kg

DRUGS (8)
  1. SAQUINAVIR [Suspect]
     Indication: HIV INFECTION
     Route: 048
     Dates: start: 20040122, end: 20040227
  2. SAQUINAVIR [Suspect]
     Route: 048
     Dates: start: 20040303, end: 20040304
  3. TENOFOVIR [Suspect]
     Indication: HIV INFECTION
     Route: 048
     Dates: start: 20040122, end: 20040227
  4. TENOFOVIR [Suspect]
     Route: 048
     Dates: start: 20040303
  5. LAMIVUDINE [Suspect]
     Indication: HIV INFECTION
     Route: 048
     Dates: start: 20040122, end: 20040227
  6. LAMIVUDINE [Suspect]
     Route: 048
     Dates: start: 20040303
  7. RITONAVIR [Suspect]
     Indication: HIV INFECTION
     Route: 048
     Dates: start: 20040122, end: 20040227
  8. RITONAVIR [Suspect]
     Route: 048
     Dates: start: 20040303, end: 20040304

REACTIONS (4)
  - CERVICAL DYSPLASIA [None]
  - NAUSEA [None]
  - POST PROCEDURAL PAIN [None]
  - VOMITING [None]
